FAERS Safety Report 5622796-3 (Version None)
Quarter: 2008Q1

REPORT INFORMATION
  Report Type: 
  Country: None (occurrence: None)
  Receive Date: 20080212
  Receipt Date: 20080204
  Transmission Date: 20080703
  Serious: No
  Sender: FDA-Public Use
  Company Number: US-BOEHRINGER INGELHEIM GMBH, GERMANY-2007-BP-02273BP

PATIENT
  Sex: Male

DRUGS (5)
  1. SPIRIVA [Suspect]
     Indication: CHRONIC OBSTRUCTIVE PULMONARY DISEASE
     Route: 055
     Dates: start: 20061201
  2. LORATADINE [Concomitant]
  3. MUCINEX [Concomitant]
  4. HYDROCODONE BITARTRATE [Concomitant]
     Indication: PAIN
  5. OXYCONTIN [Concomitant]
     Indication: PAIN

REACTIONS (2)
  - DRUG INEFFECTIVE [None]
  - WHEEZING [None]
